FAERS Safety Report 25350610 (Version 1)
Quarter: 2025Q2

REPORT INFORMATION
  Report Type: Spontaneous
  Country: US (occurrence: US)
  Receive Date: 20250523
  Receipt Date: 20250523
  Transmission Date: 20250716
  Serious: Yes (Other)
  Sender: NOVITIUM PHARMA
  Company Number: US-NOVITIUMPHARMA-2025USNVP01185

PATIENT
  Age: 56 Year
  Sex: Female

DRUGS (2)
  1. PREDNISONE [Suspect]
     Active Substance: PREDNISONE
     Indication: Asthma
  2. PREDNISONE [Suspect]
     Active Substance: PREDNISONE
     Indication: Periorbital inflammation

REACTIONS (3)
  - Endocrine ophthalmopathy [Recovering/Resolving]
  - Optic neuropathy [Recovered/Resolved]
  - Exophthalmos [Recovering/Resolving]
